FAERS Safety Report 9119320 (Version 1)
Quarter: 2013Q1

REPORT INFORMATION
  Report Type: Report from Study
  Country: JP (occurrence: JP)
  Receive Date: 20130226
  Receipt Date: 20130226
  Transmission Date: 20140127
  Serious: Yes (Other)
  Sender: FDA-Public Use
  Company Number: JP-009507513-2011SP041309

PATIENT
  Age: 76 Year
  Sex: Male
  Weight: 56.8 kg

DRUGS (4)
  1. REBETOL [Suspect]
     Indication: CHRONIC HEPATITIS C
     Dosage: UNK
     Route: 048
     Dates: start: 20100930, end: 20101013
  2. FERON [Suspect]
     Indication: CHRONIC HEPATITIS C
     Dosage: 3 MILLION IU, BID
     Route: 041
     Dates: start: 20100930, end: 20101013
  3. PROMAC (POLAPREZINC) [Concomitant]
     Indication: PROPHYLAXIS AGAINST GASTROINTESTINAL ULCER
     Dosage: 150 MG, UNK
     Route: 048
     Dates: start: 20100928
  4. VOLTAREN [Concomitant]
     Indication: PROPHYLAXIS
     Dosage: 4 TIMES PER WEEK
     Route: 054
     Dates: start: 20100930, end: 20101010

REACTIONS (2)
  - Proteinuria [Recovered/Resolved]
  - Pyrexia [Recovering/Resolving]
